FAERS Safety Report 9619883 (Version 1)
Quarter: 2013Q4

REPORT INFORMATION
  Report Type: Spontaneous
  Country: US (occurrence: US)
  Receive Date: 20131014
  Receipt Date: 20131014
  Transmission Date: 20140711
  Serious: No
  Sender: FDA-Public Use
  Company Number: US-PFIZER INC-2013289714

PATIENT
  Age: 52 Year
  Sex: Female

DRUGS (4)
  1. PREMPRO [Suspect]
     Indication: VULVOVAGINAL DISCOMFORT
     Dosage: UNK
     Route: 048
  2. PREMPRO [Suspect]
     Indication: DYSPAREUNIA
  3. PREMPRO [Suspect]
     Indication: VULVOVAGINAL BURNING SENSATION
  4. PREMPRO [Suspect]
     Indication: VULVOVAGINAL DRYNESS

REACTIONS (1)
  - Drug ineffective [Unknown]
